FAERS Safety Report 5886317-2 (Version None)
Quarter: 2008Q3

REPORT INFORMATION
  Report Type: 
  Country: None (occurrence: None)
  Receive Date: 20080917
  Receipt Date: 20080912
  Transmission Date: 20090109
  Serious: Yes (Other)
  Sender: FDA-Public Use
  Company Number: A0747787A

PATIENT
  Age: 2 Year
  Sex: Female
  Weight: 15 kg

DRUGS (5)
  1. FLIXOTIDE [Suspect]
     Dosage: 2SPR TWICE PER DAY
     Route: 045
     Dates: start: 20080820, end: 20080910
  2. DESALEX [Concomitant]
     Dates: start: 20080820
  3. BUDESONIDE [Concomitant]
     Dates: start: 20080310
  4. PULMICORT-100 [Concomitant]
     Dates: start: 20080901
  5. AMOXYCILLIN + POTASSIUM CLAVULANATE [Concomitant]

REACTIONS (4)
  - CRYING [None]
  - HALLUCINATION [None]
  - ILL-DEFINED DISORDER [None]
  - IRRITABILITY [None]
